FAERS Safety Report 13448621 (Version 1)
Quarter: 2017Q2

REPORT INFORMATION
  Report Type: Other
  Country: FI (occurrence: FI)
  Receive Date: 20170417
  Receipt Date: 20170417
  Transmission Date: 20170830
  Serious: Yes (Other)
  Sender: FDA-Public Use
  Company Number: FI-LABORATOIRE HRA PHARMA-1065422

PATIENT
  Sex: Female

DRUGS (1)
  1. ELLA [Suspect]
     Active Substance: ULIPRISTAL ACETATE
     Route: 048
     Dates: start: 20170320, end: 20170320

REACTIONS (3)
  - Vaginal haemorrhage [None]
  - Abortion spontaneous [None]
  - Unintended pregnancy [None]

NARRATIVE: CASE EVENT DATE: 20170406
